FAERS Safety Report 18468780 (Version 1)
Quarter: 2020Q4

REPORT INFORMATION
  Report Type: Spontaneous
  Country: US (occurrence: US)
  Receive Date: 20201105
  Receipt Date: 20201105
  Transmission Date: 20210114
  Serious: Yes (Death, Hospitalization, Other)
  Sender: FDA-Public Use
  Company Number: US-GILEAD-2020-0502304

PATIENT
  Age: 56 Year
  Sex: Male
  Weight: 55.2 kg

DRUGS (3)
  1. VANCOMYCIN [Concomitant]
     Active Substance: VANCOMYCIN
     Indication: PNEUMONIA
     Dosage: UNK
     Dates: start: 20200926
  2. CEFEPIME [Concomitant]
     Active Substance: CEFEPIME HYDROCHLORIDE
     Indication: PNEUMONIA
  3. VEKLURY [Suspect]
     Active Substance: REMDESIVIR
     Indication: COVID-19
     Dosage: UNK
     Route: 042
     Dates: start: 20200921, end: 20200925

REACTIONS (1)
  - Death [Fatal]

NARRATIVE: CASE EVENT DATE: 20200926
